FAERS Safety Report 18993318 (Version 2)
Quarter: 2022Q4

REPORT INFORMATION
  Report Type: Spontaneous
  Country: UY (occurrence: UY)
  Receive Date: 20210310
  Receipt Date: 20221108
  Transmission Date: 20230112
  Serious: Yes (Other)
  Sender: FDA-Public Use
  Company Number: UY-TAKEDA-2021TUS014764

PATIENT
  Age: 20 Year
  Sex: Male

DRUGS (3)
  1. FEIBA NF [Suspect]
     Active Substance: ANTI-INHIBITOR COAGULANT COMPLEX
     Indication: Product used for unknown indication
     Dosage: UNK
     Route: 065
  2. EMICIZUMAB [Concomitant]
     Active Substance: EMICIZUMAB
     Indication: Prophylaxis
     Dosage: 3 MILLIGRAM/KILOGRAM, 1/WEEK
     Route: 065
     Dates: start: 201907
  3. EMICIZUMAB [Concomitant]
     Active Substance: EMICIZUMAB
     Dosage: 1.5 MILLIGRAM/KILOGRAM
     Route: 065

REACTIONS (6)
  - Haemorrhage [Unknown]
  - Haemarthrosis [Unknown]
  - Muscle haemorrhage [Unknown]
  - Anaemia [Unknown]
  - Haematemesis [Unknown]
  - Contusion [Unknown]
